FAERS Safety Report 8516872-5 (Version None)
Quarter: 2012Q3

REPORT INFORMATION
  Report Type: 
  Country: None (occurrence: None)
  Receive Date: 20120706
  Receipt Date: 20120628
  Transmission Date: 20120928
  Serious: Yes (Other)
  Sender: FDA-Public Use
  Company Number: 2012MA008113

PATIENT
  Age: 65 Year
  Sex: Male

DRUGS (3)
  1. GABAPENTIN [Suspect]
     Indication: BACK PAIN
     Dosage: 900 MG; QD; PO
     Route: 048
  2. TRAMADOL HYDROCHLORIDE [Suspect]
     Indication: BACK PAIN
     Dosage: 300 MG; QD; ORAL
     Route: 048
  3. FENTANYL-100 [Suspect]
     Indication: SPINAL PAIN
     Dosage: 12.5 MCG; TRANSDERMAL
     Route: 062
     Dates: start: 20120607, end: 20120607

REACTIONS (1)
  - TOXICITY TO VARIOUS AGENTS [None]
